FAERS Safety Report 11870067 (Version 1)
Quarter: 2015Q4

REPORT INFORMATION
  Report Type: Spontaneous
  Country: US (occurrence: US)
  Receive Date: 20151228
  Receipt Date: 20151228
  Transmission Date: 20160305
  Serious: No
  Sender: FDA-Public Use
  Company Number: US-HORIZON-DUE-0121-2015

PATIENT
  Age: 83 Year
  Sex: Female

DRUGS (2)
  1. DUEXIS [Suspect]
     Active Substance: FAMOTIDINE\IBUPROFEN
     Indication: JOINT SWELLING
     Dosage: 1 TABLET AT BEDTIME
  2. ZOCOR [Concomitant]
     Active Substance: SIMVASTATIN

REACTIONS (2)
  - Off label use [Unknown]
  - Therapy cessation [Unknown]
